FAERS Safety Report 14145830 (Version 5)
Quarter: 2021Q3

REPORT INFORMATION
  Report Type: Report from Study
  Country: US (occurrence: US)
  Receive Date: 20171031
  Receipt Date: 20210831
  Transmission Date: 20211014
  Serious: Yes (Life-Threatening, Hospitalization)
  Sender: FDA-Public Use
  Company Number: PHHO2017US014860

PATIENT
  Age: 71 Year
  Sex: Male
  Weight: 71.3 kg

DRUGS (6)
  1. ZYKADIA [Suspect]
     Active Substance: CERITINIB
     Indication: NEOPLASM
     Dosage: 600 MG, QD
     Route: 048
     Dates: start: 20170914, end: 20171019
  2. GEMCITABINE. [Suspect]
     Active Substance: GEMCITABINE
     Indication: NEOPLASM
     Dosage: 1850 MG, QW (3/4 WEEKS)
     Route: 041
     Dates: start: 20170914, end: 20171019
  3. CIPROFLOXACIN. [Concomitant]
     Active Substance: CIPROFLOXACIN
     Indication: URINARY TRACT INFECTION
     Dosage: 500 MG, Q12H
     Route: 048
     Dates: start: 20171019
  4. METOPROLOL. [Concomitant]
     Active Substance: METOPROLOL
     Indication: CARDIAC FAILURE
     Dosage: 50 MG, QD
     Route: 048
     Dates: start: 20071101
  5. PROCHLORPERAZINE. [Concomitant]
     Active Substance: PROCHLORPERAZINE
     Indication: PRODUCT USED FOR UNKNOWN INDICATION
     Dosage: 10 MG, TID
     Route: 048
     Dates: start: 20170914
  6. MORPHINE [Concomitant]
     Active Substance: MORPHINE
     Indication: COUGH
     Dosage: 0.25 TO 0.5 ML Q4H
     Route: 065
     Dates: start: 20170825

REACTIONS (4)
  - Cardiac tamponade [Unknown]
  - Syncope [Unknown]
  - Atrial fibrillation [Recovered/Resolved]
  - Pericardial effusion [Unknown]

NARRATIVE: CASE EVENT DATE: 20171024
